FAERS Safety Report 16353640 (Version 1)
Quarter: 2019Q2

REPORT INFORMATION
  Report Type: Spontaneous
  Country: CN (occurrence: CN)
  Receive Date: 20190524
  Receipt Date: 20190524
  Transmission Date: 20190711
  Serious: Yes (Other)
  Sender: FDA-Public Use
  Company Number: CN-PFIZER INC-2019216777

PATIENT
  Age: 74 Year
  Sex: Male
  Weight: 70 kg

DRUGS (1)
  1. SOLU-MEDROL [Suspect]
     Active Substance: METHYLPREDNISOLONE SODIUM SUCCINATE
     Indication: BRAIN OEDEMA
     Dosage: 80 MG, 2X/DAY
     Route: 042
     Dates: start: 20190424, end: 20190425

REACTIONS (2)
  - Gastric haemorrhage [Recovering/Resolving]
  - Gastrointestinal tract irritation [Recovering/Resolving]

NARRATIVE: CASE EVENT DATE: 20190424
